FAERS Safety Report 7864011-6 (Version None)
Quarter: 2011Q4

REPORT INFORMATION
  Report Type: 
  Country: None (occurrence: None)
  Receive Date: 20111028
  Receipt Date: 20111019
  Transmission Date: 20120403
  Serious: No
  Sender: FDA-Public Use
  Company Number: US-BIOGENIDEC-2011BI040610

PATIENT
  Age: 53 Year
  Sex: Female

DRUGS (1)
  1. TYSABRI [Suspect]
     Indication: MULTIPLE SCLEROSIS
     Route: 042
     Dates: start: 20080901

REACTIONS (5)
  - CENTRAL NERVOUS SYSTEM LESION [None]
  - MUSCLE SPASTICITY [None]
  - FALL [None]
  - UPPER LIMB FRACTURE [None]
  - MULTIPLE SCLEROSIS RELAPSE [None]
